FAERS Safety Report 5801848-9 (Version None)
Quarter: 2008Q3

REPORT INFORMATION
  Report Type: 
  Country: None (occurrence: None)
  Receive Date: 20080702
  Receipt Date: 20080612
  Transmission Date: 20090109
  Serious: Yes (Death, Other)
  Sender: FDA-Public Use
  Company Number: TPH-00055

PATIENT
  Sex: Male

DRUGS (2)
  1. TRIQUILAR [Suspect]
     Indication: CONTRACEPTION
     Route: 064
     Dates: start: 20040101, end: 20050101
  2. UNKNOWN MEDICATION (UNCODEABLE ^UNCLASSIFIABLE^) [Concomitant]

REACTIONS (6)
  - DISEASE COMPLICATION [None]
  - GASTROOESOPHAGEAL REFLUX DISEASE [None]
  - LOSS OF CONSCIOUSNESS [None]
  - MATERNAL DRUGS AFFECTING FOETUS [None]
  - NEONATAL ASPHYXIA [None]
  - NEONATAL ASPIRATION [None]
